FAERS Safety Report 7026594-8 (Version None)
Quarter: 2010Q3

REPORT INFORMATION
  Report Type: 
  Country: None (occurrence: None)
  Receive Date: 20100930
  Receipt Date: 20100920
  Transmission Date: 20110219
  Serious: Yes (Other)
  Sender: FDA-Public Use
  Company Number: 2010SP038955

PATIENT
  Age: 33 Year
  Sex: Male

DRUGS (5)
  1. SAPHRIS [Suspect]
     Indication: BIPOLAR DISORDER
     Dosage: 5 MG; BID; SL
     Route: 060
     Dates: start: 20100618, end: 20100621
  2. CYMBALTA [Concomitant]
  3. TRAZODONE HCL [Concomitant]
  4. ALPRAZOLAM [Concomitant]
  5. LAMICTAL [Concomitant]

REACTIONS (4)
  - AGGRESSION [None]
  - ANGER [None]
  - HOMICIDAL IDEATION [None]
  - PHYSICAL ASSAULT [None]
